FAERS Safety Report 10289418 (Version 1)
Quarter: 2014Q3

REPORT INFORMATION
  Report Type: Spontaneous
  Country: GR (occurrence: GR)
  Receive Date: 20140710
  Receipt Date: 20140710
  Transmission Date: 20150326
  Serious: Yes (Hospitalization)
  Sender: FDA-Public Use
  Company Number: PHHY2014GR083073

PATIENT
  Age: 39 Year
  Sex: Female

DRUGS (7)
  1. AZATHIOPRINE. [Suspect]
     Active Substance: AZATHIOPRINE
     Dosage: 125 MG, PER DAY
  2. METHYLPREDNISOLONE [Suspect]
     Active Substance: METHYLPREDNISOLONE
     Dosage: 8 MG, BID
  3. NADROPARIN CALCIUM [Suspect]
     Active Substance: NADROPARIN CALCIUM
     Dosage: 0.3 ML, BID
  4. SALBUTAMOL [Suspect]
     Active Substance: ALBUTEROL
     Dosage: 200 UG, TID
  5. FLUTICASONE PROPIONATE. [Suspect]
     Active Substance: FLUTICASONE PROPIONATE
     Dosage: 250 UG, BID
  6. METHYLPREDNISOLONE [Suspect]
     Active Substance: METHYLPREDNISOLONE
     Dosage: 4 MG, BID
  7. BETAMETHASONE [Suspect]
     Active Substance: BETAMETHASONE
     Dosage: 12 MG, TWO DOSES

REACTIONS (11)
  - Local swelling [Unknown]
  - Dyspnoea [Unknown]
  - Granulomatosis with polyangiitis [Unknown]
  - Lymphadenopathy [Unknown]
  - Condition aggravated [Unknown]
  - Interstitial lung disease [Unknown]
  - Asthma [Unknown]
  - Dysphagia [Unknown]
  - Maternal exposure during pregnancy [Unknown]
  - Amniotic fluid volume decreased [Unknown]
  - Premature delivery [Unknown]
